FAERS Safety Report 5719641-4 (Version None)
Quarter: 2008Q2

REPORT INFORMATION
  Report Type: 
  Country: None (occurrence: None)
  Receive Date: 20080428
  Receipt Date: 20080422
  Transmission Date: 20081010
  Serious: Yes (Other)
  Sender: FDA-Public Use
  Company Number: JP-AVENTIS-200811247JP

PATIENT
  Age: 66 Year
  Sex: Male
  Weight: 66 kg

DRUGS (4)
  1. ALLEGRA [Suspect]
     Indication: RHINITIS ALLERGIC
     Route: 048
     Dates: start: 20080319, end: 20080329
  2. MAINTATE [Concomitant]
     Indication: HYPERTENSION
     Route: 048
     Dates: start: 19980907
  3. PROBUCOL [Concomitant]
     Indication: HYPERLIPIDAEMIA
     Route: 048
     Dates: start: 20030217
  4. GASTER D [Concomitant]
     Indication: GASTRITIS
     Route: 048
     Dates: start: 20070306

REACTIONS (1)
  - SYNCOPE [None]
